FAERS Safety Report 20176135 (Version 2)
Quarter: 2021Q4

REPORT INFORMATION
  Report Type: Spontaneous
  Country: US (occurrence: US)
  Receive Date: 20211213
  Receipt Date: 20211228
  Transmission Date: 20220303
  Serious: Yes (Death, Other)
  Sender: FDA-Public Use
  Company Number: US-PFIZER INC-202101689687

PATIENT
  Age: 68 Year
  Sex: Male

DRUGS (1)
  1. SOLU-MEDROL [Suspect]
     Active Substance: METHYLPREDNISOLONE SODIUM SUCCINATE
     Indication: Colitis
     Dosage: UNK

REACTIONS (4)
  - Drug ineffective [Fatal]
  - Colitis [Fatal]
  - Shock haemorrhagic [Fatal]
  - Large intestine perforation [Fatal]
